FAERS Safety Report 7755071-1 (Version None)
Quarter: 2011Q3

REPORT INFORMATION
  Report Type: 
  Country: None (occurrence: None)
  Receive Date: 20110913
  Receipt Date: 20110830
  Transmission Date: 20111222
  Serious: Yes (Other)
  Sender: FDA-Public Use
  Company Number: AUR-APL-2011-04908

PATIENT
  Age: 4 Day
  Sex: Male

DRUGS (1)
  1. ZIDOVUDINE [Suspect]
     Indication: PROPHYLAXIS AGAINST HIV INFECTION

REACTIONS (6)
  - NEUTROPENIA NEONATAL [None]
  - METABOLIC ACIDOSIS [None]
  - DRUG PRESCRIBING ERROR [None]
  - ASPARTATE AMINOTRANSFERASE INCREASED [None]
  - OVERDOSE [None]
  - BLOOD LACTIC ACID INCREASED [None]
